FAERS Safety Report 6702139-4 (Version None)
Quarter: 2010Q2

REPORT INFORMATION
  Report Type: 
  Country: None (occurrence: None)
  Receive Date: 20100429
  Receipt Date: 20100421
  Transmission Date: 20101027
  Serious: Yes (Other)
  Sender: FDA-Public Use
  Company Number: PHHO2010JP06163

PATIENT
  Sex: Male
  Weight: 69 kg

DRUGS (4)
  1. STI571/CGP57148B T35717+TAB [Suspect]
     Indication: GASTROINTESTINAL STROMAL TUMOUR
     Dosage: 400 MG, QD
     Route: 048
     Dates: start: 20100108, end: 20100420
  2. AMARYL [Concomitant]
     Indication: DIABETES MELLITUS
  3. NU-LOTAN [Concomitant]
     Indication: HYPERTENSION
  4. NORVASC [Concomitant]
     Indication: HYPERTENSION

REACTIONS (2)
  - LUNG ADENOCARCINOMA [None]
  - NEOPLASM MALIGNANT [None]
